FAERS Safety Report 18634447 (Version 1)
Quarter: 2020Q4

REPORT INFORMATION
  Report Type: Report from Study
  Country: US (occurrence: US)
  Receive Date: 20201218
  Receipt Date: 20201218
  Transmission Date: 20210114
  Serious: Yes (Death, Hospitalization)
  Sender: FDA-Public Use
  Company Number: US-ROCHE-2732559

PATIENT
  Sex: Female

DRUGS (6)
  1. VEMURAFENIB. [Suspect]
     Active Substance: VEMURAFENIB
     Indication: NEOPLASM
  2. VEMURAFENIB. [Suspect]
     Active Substance: VEMURAFENIB
     Indication: NON-HODGKIN^S LYMPHOMA
  3. COBIMETINIB. [Suspect]
     Active Substance: COBIMETINIB
     Indication: NEOPLASM
  4. COBIMETINIB. [Suspect]
     Active Substance: COBIMETINIB
     Indication: PLASMA CELL MYELOMA
  5. COBIMETINIB. [Suspect]
     Active Substance: COBIMETINIB
     Indication: NON-HODGKIN^S LYMPHOMA
     Dosage: ON 24/APR/2020, SHE RECEIVED MOST RECENT DOSE OF COBIMETINIB 60 MG
     Route: 048
     Dates: start: 20200401
  6. VEMURAFENIB. [Suspect]
     Active Substance: VEMURAFENIB
     Indication: PLASMA CELL MYELOMA
     Dosage: ON 24/APR/2020, SHE RECEIVED MOST RECENT DOSE OF VEMURAFENIB 1920 MG
     Route: 048
     Dates: start: 20200401

REACTIONS (1)
  - Acute kidney injury [Fatal]

NARRATIVE: CASE EVENT DATE: 20200424
